FAERS Safety Report 22655708 (Version 1)
Quarter: 2023Q2

REPORT INFORMATION
  Report Type: Spontaneous
  Country: FR (occurrence: FR)
  Receive Date: 20230629
  Receipt Date: 20230629
  Transmission Date: 20230722
  Serious: Yes (Hospitalization)
  Sender: FDA-Public Use
  Company Number: None

PATIENT
  Age: 68 Year
  Sex: Female
  Weight: 63 kg

DRUGS (10)
  1. METHYLPREDNISOLONE [Suspect]
     Active Substance: METHYLPREDNISOLONE
     Indication: Chemotherapy side effect prophylaxis
     Dosage: 60 MG, SINGLE
     Route: 042
     Dates: start: 20230605, end: 20230605
  2. CISPLATIN [Suspect]
     Active Substance: CISPLATIN
     Indication: Endometrial cancer
     Dosage: 84 MG, EVERY 3 WEEKS
     Route: 042
     Dates: start: 20230605, end: 20230605
  3. ALIZAPRIDE HYDROCHLORIDE [Suspect]
     Active Substance: ALIZAPRIDE HYDROCHLORIDE
     Indication: Chemotherapy side effect prophylaxis
     Dosage: 100 MG, SINGLE
     Route: 042
     Dates: start: 20230605, end: 20230605
  4. METOPIMAZINE [Suspect]
     Active Substance: METOPIMAZINE
     Indication: Prophylaxis of nausea and vomiting
     Dosage: 45 MG, SINGLE
     Route: 048
     Dates: start: 20230606, end: 20230606
  5. CHLORPROMAZINE [Suspect]
     Active Substance: CHLORPROMAZINE
     Indication: Chemotherapy side effect prophylaxis
     Dosage: 8 MG, SINGLE
     Route: 042
     Dates: start: 20230605, end: 20230605
  6. APREPITANT [Suspect]
     Active Substance: APREPITANT
     Indication: Prophylaxis of nausea and vomiting
     Dosage: 80 MG, SINGLE
     Route: 048
     Dates: start: 20230606, end: 20230606
  7. FUROSEMIDE [Suspect]
     Active Substance: FUROSEMIDE
     Indication: Premedication
     Dosage: 20 MG, SINGLE
     Route: 042
     Dates: start: 20230605, end: 20230605
  8. LEVOTHYROXINE SODIUM [Concomitant]
     Active Substance: LEVOTHYROXINE SODIUM
     Dosage: 137.5 UG, 1X/DAY
     Route: 048
  9. CARTEOLOL HYDROCHLORIDE [Concomitant]
     Active Substance: CARTEOLOL HYDROCHLORIDE
     Route: 047
  10. RACECADOTRIL [Concomitant]
     Active Substance: RACECADOTRIL
     Dosage: 300 MG, 1X/DAY
     Route: 048

REACTIONS (4)
  - Tonic clonic movements [Recovered/Resolved]
  - Hyponatraemia [Recovered/Resolved]
  - Diarrhoea [Recovered/Resolved]
  - Off label use [Unknown]

NARRATIVE: CASE EVENT DATE: 20230605
